FAERS Safety Report 8436556-1 (Version None)
Quarter: 2012Q2

REPORT INFORMATION
  Report Type: 
  Country: None (occurrence: None)
  Receive Date: 20120614
  Receipt Date: 20120601
  Transmission Date: 20120825
  Serious: Yes (Death, Other)
  Sender: FDA-Public Use
  Company Number: ES-VERTEX PHARMACEUTICALS INC.-000000000000000780

PATIENT
  Sex: Female

DRUGS (4)
  1. INCIVO [Suspect]
     Indication: HEPATITIS C
     Dosage: DOSAGE FORM: TABLET
     Route: 048
     Dates: start: 20120401
  2. RIBAVIRIN [Concomitant]
     Indication: HEPATITIS C
  3. RIBAVIRIN [Concomitant]
  4. PEGINTERFERON ALFA-2A [Concomitant]
     Indication: HEPATITIS C

REACTIONS (4)
  - FATIGUE [None]
  - PULMONARY OEDEMA [None]
  - DYSPNOEA [None]
  - MALAISE [None]
